FAERS Safety Report 7610696-9 (Version None)
Quarter: 2011Q3

REPORT INFORMATION
  Report Type: 
  Country: None (occurrence: None)
  Receive Date: 20110715
  Receipt Date: 20110707
  Transmission Date: 20111222
  Serious: No
  Sender: FDA-Public Use
  Company Number: NZ-SANOFI-AVENTIS-2011SA043144

PATIENT
  Age: 21 Year
  Sex: Female

DRUGS (4)
  1. ARAVA [Suspect]
     Indication: RHEUMATOID ARTHRITIS
     Route: 065
  2. ETANERCEPT [Concomitant]
  3. METHOTREXATE [Concomitant]
  4. ARAVA [Suspect]
     Route: 065

REACTIONS (1)
  - MATERNAL EXPOSURE DURING PREGNANCY [None]
